FAERS Safety Report 21755774 (Version 1)
Quarter: 2022Q4

REPORT INFORMATION
  Report Type: Spontaneous
  Country: US (occurrence: US)
  Receive Date: 20221220
  Receipt Date: 20221220
  Transmission Date: 20230113
  Serious: Yes (Hospitalization)
  Sender: FDA-Public Use
  Company Number: US-PARI RESPIRATORY EQUIPMENT, INC.-2022PAR00077

PATIENT
  Age: 1 Year
  Sex: Male
  Weight: 10.385 kg

DRUGS (1)
  1. KITABIS PAK [Suspect]
     Active Substance: TOBRAMYCIN
     Indication: Tracheitis
     Dosage: 5 ML (300 MG TOTAL) VIA NEBULIZER, 2X/DAY FOR 14 DAYS ON AND 14 DAYS OFF CYCLED

REACTIONS (3)
  - Oxygen saturation decreased [Unknown]
  - Nasopharyngitis [Unknown]
  - Off label use [Unknown]

NARRATIVE: CASE EVENT DATE: 20221111
